FAERS Safety Report 7344808-1 (Version None)
Quarter: 2011Q1

REPORT INFORMATION
  Report Type: 
  Country: None (occurrence: None)
  Receive Date: 20110228
  Receipt Date: 20110218
  Transmission Date: 20110831
  Serious: Yes (Hospitalization)
  Sender: FDA-Public Use
  Company Number: 11-082

PATIENT
  Age: 68 Year
  Sex: Female

DRUGS (1)
  1. IBUPROFEN [Suspect]
     Indication: OSTEOARTHRITIS
     Dosage: 200 MG (2X/DAY) ORAL
     Route: 048

REACTIONS (1)
  - CATARACT [None]
